FAERS Safety Report 4862119-0 (Version None)
Quarter: 2005Q4

REPORT INFORMATION
  Report Type: 
  Country: None (occurrence: None)
  Receive Date: 20051201
  Receipt Date: 20050825
  Transmission Date: 20060501
  Serious: No
  Sender: FDA-Public Use
  Company Number: 2005PV001554

PATIENT
  Age: 67 Year
  Sex: Male
  Weight: 80.7403 kg

DRUGS (16)
  1. BYETTA [Suspect]
     Indication: DIABETES MELLITUS NON-INSULIN-DEPENDENT
     Dosage: 5 MCG; BID; SC
     Route: 058
     Dates: start: 20050824
  2. GLUCOVANCE [Concomitant]
  3. AVANDIA [Concomitant]
  4. LANTUS [Concomitant]
  5. DIGITEK [Concomitant]
  6. LEVOXYL [Concomitant]
  7. QUININE SULFATE [Concomitant]
  8. ZYRTEC [Concomitant]
  9. ALTACE [Concomitant]
  10. LEXAPRO [Concomitant]
  11. LIPITOR [Concomitant]
  12. QUINAPRIL [Concomitant]
  13. TRAZODONE [Concomitant]
  14. AMITRIPTYLINE HCL [Concomitant]
  15. VITAMIN B COMPLEX CAP [Concomitant]
  16. ASPIRIN [Concomitant]

REACTIONS (1)
  - BLOOD GLUCOSE INCREASED [None]
